FAERS Safety Report 11514136 (Version 1)
Quarter: 2015Q3

REPORT INFORMATION
  Report Type: Spontaneous
  Country: US (occurrence: US)
  Receive Date: 20150903
  Receipt Date: 20150903
  Transmission Date: 20151125
  Serious: No
  Sender: FDA-Public Use
  Company Number: US-ELI_LILLY_AND_COMPANY-US201212005254

PATIENT
  Age: 53 Year
  Sex: Male

DRUGS (1)
  1. CYMBALTA [Suspect]
     Active Substance: DULOXETINE HYDROCHLORIDE
     Indication: DEPRESSION
     Dosage: 60 MG, QD

REACTIONS (5)
  - Tremor [Unknown]
  - Pyrexia [Unknown]
  - Vomiting [Unknown]
  - Hyperhidrosis [Unknown]
  - Headache [Unknown]
